FAERS Safety Report 9939299 (Version 1)
Quarter: 2014Q1

REPORT INFORMATION
  Report Type: Report from Study
  Country: US (occurrence: US)
  Receive Date: 20140303
  Receipt Date: 20140303
  Transmission Date: 20141002
  Serious: No
  Sender: FDA-Public Use
  Company Number: US-ABBVIE-13P-163-1037696-00

PATIENT
  Age: 59 Year
  Sex: Female
  Weight: 48.58 kg

DRUGS (5)
  1. HUMIRA [Suspect]
     Indication: RHEUMATOID ARTHRITIS
     Dates: start: 2009
  2. LEVOXYL [Concomitant]
     Indication: HYPOTHYROIDISM
  3. OMEPRAZOLE [Concomitant]
     Indication: ULCER
     Dosage: 1-2 DAILY
  4. METHOTREXATE [Concomitant]
     Indication: RHEUMATOID ARTHRITIS
  5. LEUCOVORIN [Concomitant]
     Indication: SUPPLEMENTATION THERAPY

REACTIONS (3)
  - Bronchiectasis [Not Recovered/Not Resolved]
  - Bronchiectasis [Not Recovered/Not Resolved]
  - Pyrexia [Recovered/Resolved]
